FAERS Safety Report 5443403-9 (Version None)
Quarter: 2007Q3

REPORT INFORMATION
  Report Type: 
  Country: None (occurrence: None)
  Receive Date: 20070905
  Receipt Date: 20070831
  Transmission Date: 20080115
  Serious: Yes (Hospitalization)
  Sender: FDA-Public Use
  Company Number: B0484265A

PATIENT
  Age: 77 Year
  Sex: Female
  Weight: 34.1 kg

DRUGS (10)
  1. VALTREX [Suspect]
     Indication: HERPES ZOSTER
     Dosage: 500MG PER DAY
     Route: 048
     Dates: start: 20070817, end: 20070823
  2. FUROSEMIDE [Concomitant]
     Indication: POLYURIA
     Dosage: 40MG UNKNOWN
     Route: 048
     Dates: end: 20070820
  3. ALLOPURINOL [Concomitant]
     Dosage: 100MG UNKNOWN
     Route: 048
     Dates: end: 20070820
  4. CALTAN [Concomitant]
     Indication: BLOOD PHOSPHORUS INCREASED
     Dosage: 3150MG UNKNOWN
     Route: 048
     Dates: end: 20070820
  5. LENDORMIN [Concomitant]
     Indication: INSOMNIA
     Dosage: .25MG UNKNOWN
     Route: 048
     Dates: end: 20070820
  6. SELBEX [Concomitant]
     Dosage: 150MG UNKNOWN
     Route: 048
     Dates: end: 20070820
  7. ONEALFA [Concomitant]
     Dosage: .5MG UNKNOWN
     Route: 048
     Dates: end: 20070820
  8. SENNOSIDE [Concomitant]
     Dosage: 24MG UNKNOWN
     Route: 048
     Dates: end: 20070820
  9. ADALAT [Concomitant]
     Indication: HYPERTENSION
     Route: 048
     Dates: end: 20070820
  10. UNKNOWN DRUG [Concomitant]
     Indication: HYPERTENSION
     Route: 048
     Dates: end: 20070820

REACTIONS (8)
  - ALTERED STATE OF CONSCIOUSNESS [None]
  - DISORIENTATION [None]
  - DYSARTHRIA [None]
  - DYSSTASIA [None]
  - GAIT DISTURBANCE [None]
  - MUSCULAR WEAKNESS [None]
  - SOMNOLENCE [None]
  - SPEECH DISORDER [None]
